FAERS Safety Report 6717431-7 (Version None)
Quarter: 2010Q2

REPORT INFORMATION
  Report Type: 
  Country: None (occurrence: None)
  Receive Date: 20100510
  Receipt Date: 20100426
  Transmission Date: 20101027
  Serious: Yes (Death, Hospitalization)
  Sender: FDA-Public Use
  Company Number: DE-ROCHE-691162

PATIENT
  Sex: Female
  Weight: 114 kg

DRUGS (9)
  1. AVASTIN [Suspect]
     Dosage: GIVEN ON DAY 1 OF CYCLE
     Route: 042
     Dates: start: 20100111, end: 20100222
  2. XELODA [Suspect]
     Dosage: GIVEN ON DAYS 1 TO 14 OF CYCLE, CYCLE IS 21 DAYS
     Route: 048
     Dates: start: 20100111, end: 20100222
  3. VINORELBIN [Suspect]
     Dosage: GIVEN ON DAY 1 AND 8 OF EACH CYCLE
     Route: 042
     Dates: start: 20100111, end: 20100222
  4. THIAMAZOL [Concomitant]
     Route: 048
     Dates: start: 20091001
  5. CITALOPRAM HYDROBROMIDE [Concomitant]
     Route: 048
  6. DEXAMETHASONE TAB [Concomitant]
     Route: 048
     Dates: start: 20091001
  7. METOHEXAL [Concomitant]
     Route: 048
  8. DIAZEPAM [Concomitant]
     Indication: AGITATION
     Route: 048
     Dates: start: 20091101
  9. HALDOL [Concomitant]
     Indication: AGITATION
     Route: 048
     Dates: start: 20091101

REACTIONS (2)
  - MALIGNANT NEOPLASM PROGRESSION [None]
  - PULMONARY EMBOLISM [None]
